FAERS Safety Report 14115095 (Version 2)
Quarter: 2017Q4

REPORT INFORMATION
  Report Type: Spontaneous
  Country: IT (occurrence: IT)
  Receive Date: 20171023
  Receipt Date: 20171027
  Transmission Date: 20180321
  Serious: Yes (Hospitalization)
  Sender: FDA-Public Use
  Company Number: IT-PFIZER INC-2017455546

PATIENT
  Age: 14 Year
  Sex: Female

DRUGS (2)
  1. DEPAKIN CHRONO [Concomitant]
     Active Substance: VALPROIC ACID
     Dosage: UNK
     Route: 048
  2. ZARONTIN [Suspect]
     Active Substance: ETHOSUXIMIDE
     Indication: EPILEPSY
     Dosage: 15 ML, DAILY
     Route: 048
     Dates: start: 20170901, end: 20171011

REACTIONS (1)
  - Anxiety [Recovering/Resolving]

NARRATIVE: CASE EVENT DATE: 20171011
